FAERS Safety Report 19652915 (Version 4)
Quarter: 2022Q1

REPORT INFORMATION
  Report Type: Report from Study
  Country: US (occurrence: US)
  Receive Date: 20210803
  Receipt Date: 20220124
  Transmission Date: 20220423
  Serious: Yes (Other)
  Sender: FDA-Public Use
  Company Number: NVSC2021US167886

PATIENT
  Sex: Female

DRUGS (1)
  1. COSENTYX [Suspect]
     Active Substance: SECUKINUMAB
     Indication: Ankylosing spondylitis
     Dosage: 300 MG, QMO
     Route: 058

REACTIONS (7)
  - Demyelination [Unknown]
  - Muscular weakness [Unknown]
  - Pain [Unknown]
  - Back pain [Unknown]
  - Nasopharyngitis [Unknown]
  - Oral herpes [Unknown]
  - Liver function test increased [Unknown]
